FAERS Safety Report 5667211-9 (Version None)
Quarter: 2008Q1

REPORT INFORMATION
  Report Type: 
  Country: None (occurrence: None)
  Receive Date: 20080315
  Receipt Date: 20080109
  Transmission Date: 20080703
  Serious: No
  Sender: FDA-Public Use
  Company Number: US-ABBOTT-08P-163-0433821-00

PATIENT
  Sex: Female
  Weight: 103.6 kg

DRUGS (16)
  1. HUMIRA [Suspect]
     Indication: AUTOIMMUNE DISORDER
     Route: 058
     Dates: start: 20060701, end: 20071111
  2. HUMIRA [Suspect]
     Dosage: PEN
     Route: 058
     Dates: start: 20071111
  3. HUMIRA [Suspect]
     Indication: AUTOIMMUNE DISORDER
     Route: 058
     Dates: start: 20071111
  4. LEVOTHYROXINE SODIUM [Concomitant]
     Indication: HYPOTHYROIDISM
     Route: 048
  5. GUAIFENEFIN [Concomitant]
     Indication: SJOGREN'S SYNDROME
     Route: 048
  6. DICYCLOMINE HCL [Concomitant]
     Indication: IRRITABLE BOWEL SYNDROME
     Route: 048
  7. OXYCODONE HCL [Concomitant]
     Indication: PAIN MANAGEMENT
     Route: 048
  8. OXYCODONE HCL [Concomitant]
     Indication: PAIN MANAGEMENT
     Route: 048
  9. MECLIZINE [Concomitant]
     Indication: AUTOIMMUNE DISORDER
     Route: 048
  10. HYDROXYCHLOROQUINE PHOSPHATE [Concomitant]
     Indication: AUTOIMMUNE DISORDER
     Route: 048
  11. FOLIC ACID [Concomitant]
     Indication: VITAMIN SUPPLEMENTATION
     Route: 048
  12. GABAPENTIN [Concomitant]
     Indication: NEURALGIA
     Route: 048
  13. LANSOPRAZOLE [Concomitant]
     Indication: GASTROOESOPHAGEAL REFLUX DISEASE
     Route: 048
  14. CLONAZEPAM [Concomitant]
     Indication: SENSORY DISTURBANCE
     Route: 048
  15. PRAMIPEXOLE DIHYDROCHLORIDE [Concomitant]
     Indication: RESTLESS LEGS SYNDROME
     Route: 048
  16. METHOTREXATE [Concomitant]
     Indication: AUTOIMMUNE DISORDER
     Route: 030

REACTIONS (7)
  - ACCIDENTAL EXPOSURE [None]
  - DRUG INEFFECTIVE [None]
  - INJECTION SITE BRUISING [None]
  - INJECTION SITE PAIN [None]
  - INTERVERTEBRAL DISC PROTRUSION [None]
  - NAUSEA [None]
  - PAIN IN EXTREMITY [None]
